FAERS Safety Report 20323811 (Version 1)
Quarter: 2022Q1

REPORT INFORMATION
  Report Type: Spontaneous
  Country: US (occurrence: None)
  Receive Date: 20220111
  Receipt Date: 20220111
  Transmission Date: 20220423
  Serious: Yes (Other)
  Sender: FDA-Public Use
  Company Number: None

PATIENT
  Age: 23 Year
  Sex: Female

DRUGS (6)
  1. AJOVY [Suspect]
     Active Substance: FREMANEZUMAB-VFRM
     Indication: Migraine
     Dosage: OTHER FREQUENCY : ONCE MONTHLY;?
     Route: 058
     Dates: start: 20211028
  2. D-Amphetamine ER 20mg [Concomitant]
  3. Ubrelvy 100mg [Concomitant]
  4. BUPROPION XL [Concomitant]
     Active Substance: BUPROPION HYDROCHLORIDE
  5. Topiramate 50mg tablets [Concomitant]
  6. TRINTELLIX [Concomitant]
     Active Substance: VORTIOXETINE HYDROBROMIDE

REACTIONS (2)
  - Dyspnoea [None]
  - Dysphagia [None]
